FAERS Safety Report 23109777 (Version 1)
Quarter: 2023Q4

REPORT INFORMATION
  Report Type: Spontaneous
  Country: US (occurrence: US)
  Receive Date: 20231026
  Receipt Date: 20231026
  Transmission Date: 20240110
  Serious: Yes (Death, Life-Threatening, Hospitalization, Other)
  Sender: FDA-Public Use
  Company Number: US-MLMSERVICE-20231005-4585966-1

PATIENT

DRUGS (2)
  1. HYDROXYCHLOROQUINE [Suspect]
     Active Substance: HYDROXYCHLOROQUINE
     Indication: Systemic lupus erythematosus
     Dosage: UNK
  2. CYCLOPHOSPHAMIDE [Concomitant]
     Active Substance: CYCLOPHOSPHAMIDE
     Dosage: UNK

REACTIONS (9)
  - JC virus infection [Fatal]
  - Progressive multifocal leukoencephalopathy [Fatal]
  - Muscular weakness [Fatal]
  - Aphasia [Fatal]
  - Central nervous system lesion [Fatal]
  - Dysarthria [Fatal]
  - Vertigo [Fatal]
  - Ataxia [Fatal]
  - Paraesthesia [Fatal]
